FAERS Safety Report 21726076 (Version 1)
Quarter: 2022Q4

REPORT INFORMATION
  Report Type: Spontaneous
  Country: US (occurrence: None)
  Receive Date: 20221213
  Receipt Date: 20221213
  Transmission Date: 20230112
  Serious: Yes (Disabling)
  Sender: FDA-Public Use
  Company Number: None

PATIENT
  Age: 12 Year
  Sex: Male
  Weight: 31.75 kg

DRUGS (2)
  1. VISTARIL [Suspect]
     Active Substance: HYDROXYZINE PAMOATE
     Indication: Product used for unknown indication
     Route: 042
     Dates: start: 19970914, end: 19970914
  2. HERBAL REMEDIES [Concomitant]

REACTIONS (1)
  - Brain injury [None]

NARRATIVE: CASE EVENT DATE: 19970914
